FAERS Safety Report 23526279 (Version 2)
Quarter: 2024Q1

REPORT INFORMATION
  Report Type: Report from Study
  Country: GB (occurrence: GB)
  Receive Date: 20240215
  Receipt Date: 20240229
  Transmission Date: 20240409
  Serious: Yes (Other)
  Sender: FDA-Public Use
  Company Number: GB-SANDOZ-SDZ2024GB014066

PATIENT
  Sex: Male

DRUGS (1)
  1. HYRIMOZ [Suspect]
     Active Substance: ADALIMUMAB-ADAZ
     Indication: Spinal osteoarthritis
     Dosage: 40 MG, Q2W (EOW)
     Route: 058
     Dates: start: 20240124

REACTIONS (2)
  - Lower respiratory tract infection [Unknown]
  - Pharyngitis [Unknown]
